FAERS Safety Report 5777817-4 (Version None)
Quarter: 2008Q2

REPORT INFORMATION
  Report Type: 
  Country: None (occurrence: None)
  Receive Date: 20080618
  Receipt Date: 20080603
  Transmission Date: 20081010
  Serious: Yes (Other)
  Sender: FDA-Public Use
  Company Number: FR-PFIZER INC-2008050462

PATIENT

DRUGS (2)
  1. NEURONTIN [Suspect]
     Dosage: DAILY DOSE:800MG
  2. URBANYL [Suspect]
     Dosage: DAILY DOSE:10MG
     Dates: start: 20000101

REACTIONS (3)
  - DRUG EXPOSURE DURING PREGNANCY [None]
  - HYPOTONIA NEONATAL [None]
  - RETROGNATHIA [None]
